FAERS Safety Report 9727059 (Version 1)
Quarter: 2013Q4

REPORT INFORMATION
  Report Type: Spontaneous
  Country: SE (occurrence: SE)
  Receive Date: 20131203
  Receipt Date: 20131203
  Transmission Date: 20140711
  Serious: Yes (Other)
  Sender: FDA-Public Use
  Company Number: SE-PFIZER INC-2013342733

PATIENT
  Age: 48 Year
  Sex: Female

DRUGS (1)
  1. LIPITOR [Suspect]
     Indication: TYPE V HYPERLIPIDAEMIA
     Dosage: UNK
     Dates: end: 2011

REACTIONS (3)
  - Hearing impaired [Unknown]
  - Memory impairment [Unknown]
  - Dizziness [Unknown]
